FAERS Safety Report 6771581-8 (Version None)
Quarter: 2010Q2

REPORT INFORMATION
  Report Type: 
  Country: None (occurrence: None)
  Receive Date: 20100616
  Receipt Date: 20100602
  Transmission Date: 20101027
  Serious: Yes (Other)
  Sender: FDA-Public Use
  Company Number: PHHY2010US36385

PATIENT
  Sex: Female

DRUGS (2)
  1. FANAPT [Suspect]
     Indication: BIPOLAR DISORDER
     Dosage: 6 MG, BID
     Route: 048
     Dates: start: 20100429, end: 20100430
  2. CELEVAC [Concomitant]
     Dosage: 20 MG, QD

REACTIONS (2)
  - LOSS OF CONSCIOUSNESS [None]
  - MALAISE [None]
